FAERS Safety Report 9503218 (Version 1)
Quarter: 2013Q3

REPORT INFORMATION
  Report Type: Spontaneous
  Country: US (occurrence: US)
  Receive Date: 20130906
  Receipt Date: 20130906
  Transmission Date: 20140515
  Serious: No
  Sender: FDA-Public Use
  Company Number: US-PFIZER INC-2013254317

PATIENT
  Age: 58 Year
  Sex: Female

DRUGS (1)
  1. XELJANZ [Suspect]
     Dosage: 5 MG, 2X/DAY (TAKE 1 TABLET PO TWICE A DAY)
     Route: 048
     Dates: start: 201306

REACTIONS (2)
  - Drug dose omission [Unknown]
  - Arthritis [Unknown]
